FAERS Safety Report 4726371-4 (Version None)
Quarter: 2005Q3

REPORT INFORMATION
  Report Type: 
  Country: None (occurrence: None)
  Receive Date: 20050727
  Receipt Date: 20050712
  Transmission Date: 20060218
  Serious: Yes (Other)
  Sender: FDA-Public Use
  Company Number: 2005-DE-02738GD

PATIENT
  Age: 73 Year
  Sex: Female

DRUGS (11)
  1. CODEINE SUL TAB [Suspect]
     Indication: BACK PAIN
     Dosage: 120 MG (NR, 4 TIMES DAILY), PO
     Route: 048
  2. CODEINE SUL TAB [Suspect]
     Indication: CHEST WALL PAIN
     Dosage: 120 MG (NR, 4 TIMES DAILY), PO
     Route: 048
  3. ACETAMINOPHEN [Suspect]
     Indication: BACK PAIN
  4. ACETAMINOPHEN [Suspect]
     Indication: CHEST WALL PAIN
  5. CEFAZOLIN [Suspect]
     Indication: INFECTION
     Dosage: 2 G (NR, ONCE DAILY),
  6. CEFAZOLIN [Suspect]
     Indication: PLEURAL EFFUSION
     Dosage: 2 G (NR, ONCE DAILY),
  7. GENTAMICIN [Suspect]
     Indication: INFECTION
     Dosage: 160 MG (NR, EVERY 3 DAYS), NR
  8. GENTAMICIN [Suspect]
     Indication: PLEURAL EFFUSION
     Dosage: 160 MG (NR, EVERY 3 DAYS), NR
  9. AMLODIPINE [Concomitant]
  10. METHYLDOPA [Concomitant]
  11. FOSINOPRIL SODIUM [Concomitant]

REACTIONS (14)
  - CARDIAC MURMUR [None]
  - CATHETER RELATED INFECTION [None]
  - CEREBRAL INFARCTION [None]
  - CONVULSION [None]
  - DYSPNOEA [None]
  - GRAND MAL CONVULSION [None]
  - HYPOTENSION [None]
  - MIOSIS [None]
  - OVERDOSE [None]
  - PERICARDIAL EFFUSION [None]
  - POSTICTAL STATE [None]
  - RENAL FAILURE [None]
  - SOMNOLENCE [None]
  - VOMITING [None]
